FAERS Safety Report 5431121-2 (Version None)
Quarter: 2007Q3

REPORT INFORMATION
  Report Type: 
  Country: None (occurrence: None)
  Receive Date: 20070830
  Receipt Date: 20070220
  Transmission Date: 20080115
  Serious: No
  Sender: FDA-Public Use
  Company Number: A0640265A

PATIENT
  Age: 26 Year
  Sex: Female

DRUGS (2)
  1. WELLBUTRIN XL [Suspect]
     Indication: ANXIETY DISORDER
     Dosage: 300MG PER DAY
     Route: 048
     Dates: start: 20070215
  2. UNKNOWN MEDICATION [Concomitant]

REACTIONS (7)
  - ANOREXIA [None]
  - CHEST PAIN [None]
  - DIZZINESS [None]
  - NERVOUSNESS [None]
  - PALPITATIONS [None]
  - SWOLLEN TONGUE [None]
  - VOMITING [None]
